FAERS Safety Report 21302782 (Version 2)
Quarter: 2023Q1

REPORT INFORMATION
  Report Type: Spontaneous
  Country: GB (occurrence: GB)
  Receive Date: 20220907
  Receipt Date: 20230215
  Transmission Date: 20230417
  Serious: Yes (Disabling)
  Sender: FDA-Public Use
  Company Number: GB-MYLANLABS-2022M1091722

PATIENT
  Age: 79 Year
  Sex: Female

DRUGS (2)
  1. CIPROFLOXACIN [Suspect]
     Active Substance: CIPROFLOXACIN
     Indication: Adverse drug reaction
     Dosage: UNK
     Route: 065
     Dates: start: 2021
  2. CIPROFLOXACIN [Suspect]
     Active Substance: CIPROFLOXACIN
     Indication: Urinary tract infection

REACTIONS (13)
  - Dysphagia [Unknown]
  - Nightmare [Not Recovered/Not Resolved]
  - Eye swelling [Unknown]
  - Amnesia [Unknown]
  - Peripheral swelling [Unknown]
  - Thirst [Unknown]
  - Anxiety [Unknown]
  - Fatigue [Unknown]
  - Nausea [Unknown]
  - Vomiting [Unknown]
  - Dyspnoea [Unknown]
  - Tremor [Unknown]
  - Medication error [Unknown]

NARRATIVE: CASE EVENT DATE: 20210930
